FAERS Safety Report 17975974 (Version 1)
Quarter: 2020Q3

REPORT INFORMATION
  Report Type: Not Available
  Country: US (occurrence: US)
  Receive Date: 20200702
  Receipt Date: 20200702
  Transmission Date: 20201103
  Serious: Yes (Life-Threatening, Hospitalization, Other)
  Sender: FDA-Public Use
  Company Number: US-C B FLEET CO INC-202006-US-002318

PATIENT
  Age: 58 Year
  Sex: Female

DRUGS (3)
  1. BC (ASPIRIN\CAFFEINE) [Suspect]
     Active Substance: ASPIRIN\CAFFEINE
     Indication: MUSCULOSKELETAL PAIN
     Dosage: 3 TIMES A DAY EVERYDAY FOR A FEW MONTHS.
     Route: 048
  2. BC (ASPIRIN\CAFFEINE) [Suspect]
     Active Substance: ASPIRIN\CAFFEINE
     Indication: ABDOMINAL PAIN
  3. TYLENOL [Suspect]
     Active Substance: ACETAMINOPHEN

REACTIONS (5)
  - Brain contusion [Unknown]
  - Incorrect product administration duration [None]
  - Contusion [Unknown]
  - Migraine [Unknown]
  - Vomiting [Recovered/Resolved]
